FAERS Safety Report 18571034 (Version 1)
Quarter: 2020Q4

REPORT INFORMATION
  Report Type: Spontaneous
  Country: US (occurrence: US)
  Receive Date: 20201202
  Receipt Date: 20201202
  Transmission Date: 20210114
  Serious: No
  Sender: FDA-Public Use
  Company Number: US-NOVEN PHARMACEUTICALS, INC.-2020US004280

PATIENT
  Sex: Female
  Weight: 63.95 kg

DRUGS (2)
  1. ESTRADIOL. [Suspect]
     Active Substance: ESTRADIOL
     Indication: HYSTERECTOMY
     Dosage: 0.075 MG
     Route: 062
     Dates: start: 2019
  2. ESTRADIOL. [Suspect]
     Active Substance: ESTRADIOL
     Indication: OFF LABEL USE

REACTIONS (4)
  - Personality change [Unknown]
  - Hot flush [Unknown]
  - Mood swings [Unknown]
  - Off label use [Recovered/Resolved]

NARRATIVE: CASE EVENT DATE: 2019
